FAERS Safety Report 7558053-8 (Version None)
Quarter: 2011Q2

REPORT INFORMATION
  Report Type: 
  Country: None (occurrence: None)
  Receive Date: 20110620
  Receipt Date: 20110616
  Transmission Date: 20111010
  Serious: Yes (Death)
  Sender: FDA-Public Use
  Company Number: PHHY2011GB52893

PATIENT

DRUGS (1)
  1. METHOTREXATE [Suspect]
     Indication: THALASSAEMIA BETA

REACTIONS (1)
  - DEATH [None]
